FAERS Safety Report 25382175 (Version 1)
Quarter: 2025Q2

REPORT INFORMATION
  Report Type: Spontaneous
  Country: US (occurrence: US)
  Receive Date: 20250531
  Receipt Date: 20250531
  Transmission Date: 20250717
  Serious: No
  Sender: CELLTRION
  Company Number: US-CELLTRION INC.-2025US015839

PATIENT

DRUGS (2)
  1. ZYMFENTRA [Suspect]
     Active Substance: INFLIXIMAB-DYYB
     Indication: Crohn^s disease
     Route: 058
     Dates: start: 20250502
  2. ZYMFENTRA [Suspect]
     Active Substance: INFLIXIMAB-DYYB
     Route: 058
     Dates: start: 20250519

REACTIONS (1)
  - Product dose omission in error [Recovered/Resolved]

NARRATIVE: CASE EVENT DATE: 20250516
